FAERS Safety Report 5326536-7 (Version None)
Quarter: 2007Q2

REPORT INFORMATION
  Report Type: 
  Country: None (occurrence: None)
  Receive Date: 20070510
  Receipt Date: 20070504
  Transmission Date: 20071010
  Serious: Yes (Hospitalization, Other)
  Sender: FDA-Public Use
  Company Number: 2005-06-0078

PATIENT
  Age: 20 Year
  Sex: Male
  Weight: 56 kg

DRUGS (6)
  1. POSACONAZOLE [Suspect]
     Indication: FUNGAL INFECTION
     Dosage: 400 MG; BID; PO
     Route: 048
     Dates: start: 20040630
  2. ZENERGAN (ZONISAMIDE) [Concomitant]
  3. DEPAKENE [Concomitant]
  4. MEGACE [Concomitant]
  5. FOLIC ACID [Concomitant]
  6. PREVACID [Concomitant]

REACTIONS (10)
  - ALANINE AMINOTRANSFERASE INCREASED [None]
  - ASPARTATE AMINOTRANSFERASE INCREASED [None]
  - BLOOD ALKALINE PHOSPHATASE INCREASED [None]
  - CHOLELITHIASIS [None]
  - DEHYDRATION [None]
  - HYPERBILIRUBINAEMIA [None]
  - HYPOALBUMINAEMIA [None]
  - HYPOTENSION [None]
  - ORAL INTAKE REDUCED [None]
  - PYREXIA [None]
